FAERS Safety Report 17658900 (Version 3)
Quarter: 2020Q2

REPORT INFORMATION
  Report Type: Report from Study
  Country: KR (occurrence: KR)
  Receive Date: 20200413
  Receipt Date: 20200501
  Transmission Date: 20200713
  Serious: Yes (Death)
  Sender: FDA-Public Use
  Company Number: KR-CELLTRION INC.-2020KR021338

PATIENT

DRUGS (33)
  1. MEROPEN YUHAN INJ [Concomitant]
     Indication: FEBRILE NEUTROPENIA
     Dosage: 2 AMP, BID
     Route: 042
     Dates: start: 20191104, end: 20191205
  2. PHOSTEN [Concomitant]
     Indication: PROPHYLAXIS
     Dosage: 1 AMP, QD
     Route: 042
     Dates: start: 20191106, end: 20191125
  3. FRAGMIN [Concomitant]
     Active Substance: DALTEPARIN SODIUM
     Indication: ATRIAL FIBRILLATION
     Dosage: 2 AMP, QD
     Route: 058
     Dates: start: 20191107, end: 20191115
  4. CONCOR [Concomitant]
     Active Substance: BISOPROLOL FUMARATE
     Indication: HYPERTENSION
     Dosage: 1 TAB, QD
     Route: 048
     Dates: start: 20190313, end: 20191204
  5. MIDAZOLAM BUKWANG [Concomitant]
     Indication: SEDATION
     Dosage: 1 AMP, QD
     Route: 042
     Dates: start: 20191104, end: 20191204
  6. DAEHAN MAGNESIUM SULFATE [Concomitant]
     Indication: PROPHYLAXIS
     Dosage: 1 AMP, QD
     Route: 042
     Dates: start: 20191106, end: 20191125
  7. CITOPCIN [CIPROFLOXACIN HYDROCHLORIDE] [Concomitant]
     Indication: FEBRILE NEUTROPENIA
     Dosage: 1 AMP, BID
     Route: 042
     Dates: start: 20191106, end: 20191107
  8. TAZOPERAN [Concomitant]
     Indication: FEBRILE NEUTROPENIA
     Dosage: 1 AMP, QID
     Route: 042
     Dates: start: 20191106, end: 20191125
  9. JEIL THIAMINE HCL [Concomitant]
     Indication: PROPHYLAXIS
     Dosage: 1 AMP, QD
     Route: 042
     Dates: start: 20191104, end: 20191107
  10. KABI REMIFENTANIL [Concomitant]
     Indication: DIFFUSE LARGE B-CELL LYMPHOMA
     Dosage: 4 AMP, QD
     Route: 042
     Dates: start: 20191104, end: 20191113
  11. VANCOMYCIN HCL CJ [Concomitant]
     Indication: FEBRILE NEUTROPENIA
     Dosage: 1 AMP, QD
     Route: 042
     Dates: start: 20191104, end: 20191107
  12. NEPHSOL [Concomitant]
     Indication: PROPHYLAXIS
     Dosage: 100 ML, QD
     Route: 042
     Dates: start: 20191106, end: 20191106
  13. KCL [Concomitant]
     Active Substance: POTASSIUM CHLORIDE
     Indication: PROPHYLAXIS
     Dosage: 2 G PWDER, TID
     Route: 048
     Dates: start: 20191106, end: 20191113
  14. TRUXIMA [Suspect]
     Active Substance: RITUXIMAB-ABBS
     Indication: DIFFUSE LARGE B-CELL LYMPHOMA
     Dosage: 620 MG, EVERY 3 WEEKS
     Route: 042
     Dates: start: 20191027, end: 20191027
  15. CANCIDAS [Concomitant]
     Active Substance: CASPOFUNGIN ACETATE
     Indication: FEBRILE NEUTROPENIA
     Dosage: 70 MG, QD
     Route: 042
     Dates: start: 20191104, end: 20191206
  16. SMOFKABIVEN PERIPHERAL [Concomitant]
     Indication: PROPHYLAXIS
     Dosage: 1085 ML, QD
     Route: 042
     Dates: start: 20191019, end: 20191113
  17. JEIL ASCORBIC ACID [Concomitant]
     Indication: PROPHYLAXIS
     Dosage: 1 AMP, QD
     Route: 042
     Dates: start: 20191104, end: 20191107
  18. PRECEDEX [Concomitant]
     Active Substance: DEXMEDETOMIDINE HYDROCHLORIDE
     Indication: DELIRIUM
     Dosage: 1 AMP, QD
     Route: 042
     Dates: start: 20191104, end: 20191114
  19. CHOP [Suspect]
     Active Substance: CYCLOPHOSPHAMIDE\DOXORUBICIN\PREDNISONE\VINCRISTINE
     Dosage: UNK
     Dates: start: 20191126
  20. EMEND [Concomitant]
     Active Substance: APREPITANT
     Indication: PROPHYLAXIS OF NAUSEA AND VOMITING
     Dosage: 1 TAB, QD
     Route: 048
     Dates: start: 20191027, end: 20191128
  21. VIREAD [Concomitant]
     Active Substance: TENOFOVIR DISOPROXIL FUMARATE
     Indication: HEPATITIS B
     Dosage: UNK
     Route: 048
     Dates: start: 20191025, end: 20191204
  22. DULASTIN [Concomitant]
     Indication: PROPHYLAXIS
     Dosage: 1 AMP, QD
     Route: 058
     Dates: start: 20191029, end: 20191129
  23. MYUNGIN HALOPERIDOL [Concomitant]
     Indication: DELIRIUM
     Dosage: 0.5 AMP, QD
     Route: 042
     Dates: start: 20191024, end: 20191107
  24. ZIPAN [PROMETHAZINE HYDROCHLORIDE] [Concomitant]
     Indication: DIFFUSE LARGE B-CELL LYMPHOMA
     Dosage: 1 AMP, QD
     Route: 042
     Dates: start: 20191024, end: 20191203
  25. PENIRAMIN [Concomitant]
     Indication: ANAPHYLAXIS PROPHYLAXIS
     Dosage: 1 AMP, QD
     Route: 042
     Dates: start: 20191027, end: 20191204
  26. CHOP [Suspect]
     Active Substance: CYCLOPHOSPHAMIDE\DOXORUBICIN\PREDNISONE\VINCRISTINE
     Indication: DIFFUSE LARGE B-CELL LYMPHOMA
     Dosage: UNK
     Dates: start: 20191027
  27. PRADAXA [Concomitant]
     Active Substance: DABIGATRAN ETEXILATE MESYLATE
     Indication: ATRIAL FIBRILLATION
     Dosage: 2 TAB, BID
     Route: 048
     Dates: start: 20181205, end: 20191124
  28. TACENOL 8 HOURS ER [Concomitant]
     Indication: DIFFUSE LARGE B-CELL LYMPHOMA
     Dosage: 1 TAB, QD
     Route: 048
     Dates: start: 20191027, end: 20191126
  29. HUONS KETAMINE HCL [Concomitant]
     Indication: DIFFUSE LARGE B-CELL LYMPHOMA
     Dosage: 120 ML, QD
     Route: 042
     Dates: start: 20191104, end: 20191208
  30. PANTOLOC [PANTOPRAZOLE] [Concomitant]
     Active Substance: PANTOPRAZOLE SODIUM
     Indication: GASTROINTESTINAL DISORDER PROPHYLAXIS
     Dosage: 1 AMP, QD
     Route: 042
     Dates: start: 20191104, end: 20191206
  31. CORDARONE [Concomitant]
     Active Substance: AMIODARONE HYDROCHLORIDE
     Indication: ATRIAL FIBRILLATION
     Dosage: 2 AMP, QD
     Route: 042
     Dates: start: 20191107, end: 20191114
  32. NEUTROGIN [Concomitant]
     Active Substance: LENOGRASTIM
     Indication: PROPHYLAXIS
     Dosage: 1 AMP, QD
     Route: 058
     Dates: start: 20191103, end: 20191205
  33. FENTANYL CITRATE DAEWON [Concomitant]
     Indication: DIFFUSE LARGE B-CELL LYMPHOMA
     Dosage: 1 AMP, QD
     Route: 042
     Dates: start: 20191104, end: 20191115

REACTIONS (1)
  - Septic shock [Fatal]

NARRATIVE: CASE EVENT DATE: 20191104
